FAERS Safety Report 5368845-1 (Version None)
Quarter: 2007Q2

REPORT INFORMATION
  Report Type: 
  Country: None (occurrence: None)
  Receive Date: 20070529
  Receipt Date: 20070514
  Transmission Date: 20071010
  Serious: Yes (Hospitalization)
  Sender: FDA-Public Use
  Company Number: WDSF_00643

PATIENT
  Age: 5 Year
  Sex: Male

DRUGS (3)
  1. WINRHO SDF [Suspect]
     Indication: IDIOPATHIC THROMBOCYTOPENIC PURPURA
     Dosage: 50 UG/KG ONCE
     Dates: start: 20070507, end: 20070507
  2. ADVIL LIQUI-GELS [Concomitant]
  3. TYLENOL [Concomitant]

REACTIONS (11)
  - CONDITION AGGRAVATED [None]
  - DISORIENTATION [None]
  - DRUG HYPERSENSITIVITY [None]
  - FEAR [None]
  - HALLUCINATION [None]
  - ILL-DEFINED DISORDER [None]
  - PAIN [None]
  - PALLOR [None]
  - PANIC ATTACK [None]
  - PYREXIA [None]
  - VOMITING [None]
